FAERS Safety Report 5601043-2 (Version None)
Quarter: 2008Q1

REPORT INFORMATION
  Report Type: 
  Country: None (occurrence: None)
  Receive Date: 20080124
  Receipt Date: 20080115
  Transmission Date: 20080703
  Serious: Yes (Other)
  Sender: FDA-Public Use
  Company Number: US-ROCHE-541236

PATIENT

DRUGS (1)
  1. CELLCEPT [Suspect]
     Indication: LUPUS NEPHRITIS
     Route: 064

REACTIONS (1)
  - HEARING IMPAIRED [None]
